FAERS Safety Report 17362425 (Version 1)
Quarter: 2020Q1

REPORT INFORMATION
  Report Type: Spontaneous
  Country: US (occurrence: US)
  Receive Date: 20200201
  Receipt Date: 20200201
  Transmission Date: 20200409
  Serious: Yes (Other)
  Sender: FDA-Public Use
  Company Number: None

PATIENT
  Age: 64 Year
  Sex: Male
  Weight: 100.8 kg

DRUGS (22)
  1. VITAMIN B12 [Concomitant]
     Active Substance: CYANOCOBALAMIN
  2. MS CONTIN [Concomitant]
     Active Substance: MORPHINE SULFATE
  3. ACYCLOVIR. [Concomitant]
     Active Substance: ACYCLOVIR
  4. NARCAN [Concomitant]
     Active Substance: NALOXONE HYDROCHLORIDE
  5. SENNA-S [Concomitant]
     Active Substance: DOCUSATE SODIUM\SENNOSIDES
  6. GABAPENTIN. [Concomitant]
     Active Substance: GABAPENTIN
  7. FARYDAK [Suspect]
     Active Substance: PANOBINOSTAT
     Indication: PLASMA CELL MYELOMA
     Dosage: ?          OTHER FREQUENCY:DAYS 1,3,5,8,10,12;?
     Route: 048
     Dates: start: 20191012, end: 20200131
  8. XARELTO [Concomitant]
     Active Substance: RIVAROXABAN
  9. MILK OF MAGNESIA [Concomitant]
     Active Substance: MAGNESIUM HYDROXIDE
  10. LOPERAMIDE [Concomitant]
     Active Substance: LOPERAMIDE
  11. ENTRESTO [Concomitant]
     Active Substance: SACUBITRIL\VALSARTAN
  12. DOCUSATE [Concomitant]
     Active Substance: DOCUSATE
  13. ASPIRIN. [Concomitant]
     Active Substance: ASPIRIN
  14. PEG 3350 [Concomitant]
     Active Substance: POLYETHYLENE GLYCOL 3350
  15. THIAMINE. [Concomitant]
     Active Substance: THIAMINE
  16. PROCHLORPERAZINE. [Concomitant]
     Active Substance: PROCHLORPERAZINE
  17. LYRICA [Concomitant]
     Active Substance: PREGABALIN
  18. CARVEDILOL. [Concomitant]
     Active Substance: CARVEDILOL
  19. DEXAMETHASONE. [Suspect]
     Active Substance: DEXAMETHASONE
     Indication: PLASMA CELL MYELOMA
     Dosage: ?          OTHER FREQUENCY:ONCE A WEEK;?
     Route: 048
     Dates: start: 20191012, end: 20200131
  20. VENTOLIN [Concomitant]
     Active Substance: ALBUTEROL SULFATE
  21. POTASSIUM CHLORIDE. [Concomitant]
     Active Substance: POTASSIUM CHLORIDE
  22. FUROSEMIDE. [Concomitant]
     Active Substance: FUROSEMIDE

REACTIONS (1)
  - Death [None]

NARRATIVE: CASE EVENT DATE: 20200131
